FAERS Safety Report 9919733 (Version 1)
Quarter: 2014Q1

REPORT INFORMATION
  Report Type: Report from Study
  Country: US (occurrence: US)
  Receive Date: 20140224
  Receipt Date: 20140224
  Transmission Date: 20141002
  Serious: Yes (Other)
  Sender: FDA-Public Use
  Company Number: PHEH2014US003359

PATIENT
  Age: 41 Year
  Sex: Male

DRUGS (7)
  1. TASIGNA [Suspect]
     Indication: CHRONIC MYELOID LEUKAEMIA
     Dosage: 200 MG, BID
     Route: 048
     Dates: start: 20130718
  2. PRILOSEC [Concomitant]
  3. ALLOPURINOL [Concomitant]
  4. AZELAIC ACID [Concomitant]
  5. PROPECIA [Concomitant]
  6. SULFACETAMIDE [Concomitant]
  7. KENALOG                            /00806701/ [Concomitant]

REACTIONS (2)
  - Duodenal ulcer [Recovering/Resolving]
  - Gastrooesophageal reflux disease [Recovering/Resolving]
